FAERS Safety Report 5108490-6 (Version None)
Quarter: 2006Q3

REPORT INFORMATION
  Report Type: 
  Country: None (occurrence: None)
  Receive Date: 20060913
  Receipt Date: 20060911
  Transmission Date: 20061208
  Serious: Yes (Hospitalization)
  Sender: FDA-Public Use
  Company Number: DEWYE882811SEP06

PATIENT
  Age: 42 Year
  Sex: Female

DRUGS (3)
  1. VENLAFAXINE HCL [Suspect]
     Dosage: 30 CAPSULES (OVERDOSE AMOUNT 2250 MG)
     Route: 048
     Dates: start: 20060908, end: 20060908
  2. ALCOHOL (ETHANOL) [Suspect]
     Dosage: UNKNOWN OVERDOSE AMOUNT
     Route: 048
     Dates: start: 20060908, end: 20060908
  3. VALPROIC ACID [Suspect]
     Dosage: 42 TABLETS (OVERDOSE AMOUNT 12600 MG)
     Route: 048
     Dates: start: 20060908, end: 20060908

REACTIONS (7)
  - AGGRESSION [None]
  - AGITATION [None]
  - ALCOHOL POISONING [None]
  - INTENTIONAL OVERDOSE [None]
  - MULTIPLE DRUG OVERDOSE INTENTIONAL [None]
  - MYDRIASIS [None]
  - SUICIDE ATTEMPT [None]
